FAERS Safety Report 6862280-2 (Version None)
Quarter: 2010Q3

REPORT INFORMATION
  Report Type: 
  Country: None (occurrence: None)
  Receive Date: 20100721
  Receipt Date: 20100715
  Transmission Date: 20110219
  Serious: Yes (Other)
  Sender: FDA-Public Use
  Company Number: JP-BAYER-201013245BYL

PATIENT
  Age: 62 Year
  Sex: Female
  Weight: 75 kg

DRUGS (9)
  1. NEXAVAR [Suspect]
     Indication: HEPATIC NEOPLASM MALIGNANT
     Dosage: UNIT DOSE: 200 MG
     Route: 048
     Dates: start: 20100615, end: 20100705
  2. DEPAS [Concomitant]
     Dosage: UNIT DOSE: 0.5 MG
     Route: 048
  3. ACTOS [Concomitant]
     Dosage: UNIT DOSE: 15 MG
     Route: 048
  4. LORAZEPAM [Concomitant]
     Dosage: UNIT DOSE: 0.5 MG
     Route: 048
  5. TETRAMIDE [Concomitant]
     Dosage: UNIT DOSE: 10 MG
     Route: 048
  6. PAXIL [Concomitant]
     Dosage: UNIT DOSE: 10 MG
     Route: 048
  7. DOGMATYL [Concomitant]
     Dosage: UNIT DOSE: 50 MG
     Route: 048
  8. OXYCONTIN [Concomitant]
     Dosage: UNIT DOSE: 5 MG
     Route: 048
     Dates: start: 20100520
  9. OMEPRAL [Concomitant]
     Dosage: UNIT DOSE: 20 MG
     Route: 048

REACTIONS (4)
  - C-REACTIVE PROTEIN INCREASED [None]
  - HEPATIC ENZYME INCREASED [None]
  - PANCYTOPENIA [None]
  - VOMITING [None]
